FAERS Safety Report 8431044-0 (Version None)
Quarter: 2012Q2

REPORT INFORMATION
  Report Type: 
  Country: None (occurrence: None)
  Receive Date: 20120612
  Receipt Date: 20120605
  Transmission Date: 20120825
  Serious: Yes (Death, Hospitalization, Other)
  Sender: FDA-Public Use
  Company Number: US-BAXTER-2012BAX007659

PATIENT
  Sex: Female

DRUGS (6)
  1. DIANEAL [Suspect]
     Route: 033
     Dates: end: 20120514
  2. DIANEAL LOW CALCIUM W/ DEXTROSE 1.5% [Suspect]
     Indication: PERITONEAL DIALYSIS
     Route: 033
     Dates: end: 20120514
  3. DIANEAL LOW CALCIUM W/ DEXTROSE 1.5% [Suspect]
     Route: 033
     Dates: end: 20120514
  4. DIANEAL [Suspect]
     Indication: PERITONEAL DIALYSIS
     Route: 033
     Dates: end: 20120514
  5. DIANEAL [Suspect]
     Route: 033
     Dates: end: 20120514
  6. DIANEAL LOW CALCIUM W/ DEXTROSE 1.5% [Suspect]
     Route: 033
     Dates: end: 20120514

REACTIONS (4)
  - INFECTION [None]
  - VEIN DISORDER [None]
  - GRAFT THROMBOSIS [None]
  - SEPSIS [None]
